FAERS Safety Report 21307126 (Version 1)
Quarter: 2022Q3

REPORT INFORMATION
  Report Type: Spontaneous
  Country: US (occurrence: US)
  Receive Date: 20220908
  Receipt Date: 20220908
  Transmission Date: 20221026
  Serious: Yes (Other)
  Sender: FDA-Public Use
  Company Number: US-MYLANLABS-2022M1092158

PATIENT
  Age: 21 Year
  Sex: Female

DRUGS (3)
  1. METHOTREXATE [Suspect]
     Active Substance: METHOTREXATE
     Indication: Chorioretinitis
     Dosage: UNK
     Route: 048
     Dates: start: 2019, end: 2019
  2. CLOBETASOL [Suspect]
     Active Substance: CLOBETASOL
     Indication: Alopecia areata
     Dosage: UNK
     Route: 061
  3. MINOXIDIL [Suspect]
     Active Substance: MINOXIDIL
     Indication: Alopecia areata
     Dosage: UNK
     Route: 061

REACTIONS (2)
  - Drug ineffective [Unknown]
  - Off label use [Unknown]
